FAERS Safety Report 22033220 (Version 1)
Quarter: 2023Q1

REPORT INFORMATION
  Report Type: Spontaneous
  Country: US (occurrence: US)
  Receive Date: 20230224
  Receipt Date: 20230224
  Transmission Date: 20230418
  Serious: Yes (Other)
  Sender: FDA-Public Use
  Company Number: US-BAYER-2023A019572

PATIENT
  Age: 45 Year
  Sex: Male

DRUGS (3)
  1. ASPIRIN [Interacting]
     Active Substance: ASPIRIN
  2. CLOPIDOGREL [Interacting]
     Active Substance: CLOPIDOGREL BISULFATE
  3. HEPARIN [Interacting]
     Active Substance: HEPARIN SODIUM

REACTIONS (3)
  - Myocardial rupture [None]
  - Arterial intramural haematoma [None]
  - Labelled drug-drug interaction medication error [None]
